FAERS Safety Report 10922435 (Version 2)
Quarter: 2015Q2

REPORT INFORMATION
  Report Type: Report from Study
  Country: CA (occurrence: CA)
  Receive Date: 20150317
  Receipt Date: 20150415
  Transmission Date: 20150821
  Serious: Yes (Other)
  Sender: FDA-Public Use
  Company Number: PHHY2015CA031595

PATIENT
  Sex: Female

DRUGS (4)
  1. ACLASTA [Suspect]
     Active Substance: ZOLEDRONIC ACID
     Dosage: 5 MG, PER YEAR
     Route: 042
     Dates: start: 20111124
  2. ACLASTA [Suspect]
     Active Substance: ZOLEDRONIC ACID
     Dosage: 5 MG, PER YEAR
     Route: 042
     Dates: start: 20141204, end: 20141204
  3. ACLASTA [Suspect]
     Active Substance: ZOLEDRONIC ACID
     Indication: OSTEOPOROSIS
     Dosage: 5 MG, PER YEAR
     Route: 042
     Dates: start: 20101118
  4. ACLASTA [Suspect]
     Active Substance: ZOLEDRONIC ACID
     Dosage: 5 MG, PER YEAR
     Route: 042
     Dates: start: 20121204

REACTIONS (7)
  - Monoclonal gammopathy [Unknown]
  - Pain [Unknown]
  - Neoplasm malignant [Not Recovered/Not Resolved]
  - Hyperplasia [Unknown]
  - Hypercalcaemia [Unknown]
  - Constipation [Unknown]
  - Blood parathyroid hormone increased [Unknown]

NARRATIVE: CASE EVENT DATE: 2013
